FAERS Safety Report 5149282-1 (Version None)
Quarter: 2006Q4

REPORT INFORMATION
  Report Type: 
  Country: None (occurrence: None)
  Receive Date: 20061113
  Receipt Date: 20061020
  Transmission Date: 20070319
  Serious: Yes (Hospitalization)
  Sender: FDA-Public Use
  Company Number: FR-GLAXOSMITHKLINE-B0443856A

PATIENT
  Age: 78 Year
  Sex: Female

DRUGS (2)
  1. ARIXTRA [Suspect]
     Dosage: 2.5MG PER DAY
     Route: 058
     Dates: start: 20060901, end: 20060918
  2. LASIX [Concomitant]
     Dosage: 40MG PER DAY
     Route: 048

REACTIONS (2)
  - CEREBRAL HAEMATOMA [None]
  - CONFUSIONAL STATE [None]
